FAERS Safety Report 10176957 (Version 1)
Quarter: 2014Q2

REPORT INFORMATION
  Report Type: Spontaneous
  Country: GB (occurrence: GB)
  Receive Date: 20140516
  Receipt Date: 20140516
  Transmission Date: 20141212
  Serious: Yes (Other)
  Sender: FDA-Public Use
  Company Number: GB-ELI_LILLY_AND_COMPANY-GB201405001071

PATIENT
  Age: 54 Year
  Sex: Male
  Weight: 76 kg

DRUGS (7)
  1. TADALAFIL [Suspect]
     Indication: ERECTILE DYSFUNCTION
     Dosage: 20 MG, PRN
     Route: 048
     Dates: start: 2006, end: 201404
  2. NITROFURANTOIN [Concomitant]
     Dosage: 100 MG, BID
  3. PARAFFIN, LIQUID [Concomitant]
     Dosage: UNK
     Route: 061
     Dates: start: 20131121
  4. MACROGOL [Concomitant]
     Dosage: 1 DF, BID
  5. ALPROSTADIL [Concomitant]
     Dosage: 10 UG, UNK
  6. MODAFINIL [Concomitant]
     Dosage: 100 MG, QD
     Dates: start: 20140217
  7. PARAFFIN SOFT [Concomitant]
     Dosage: UNK
     Route: 061
     Dates: start: 20131121

REACTIONS (1)
  - Chorioretinopathy [Recovering/Resolving]
